FAERS Safety Report 6901757-8 (Version None)
Quarter: 2010Q3

REPORT INFORMATION
  Report Type: 
  Country: None (occurrence: None)
  Receive Date: 20100803
  Receipt Date: 20100728
  Transmission Date: 20110219
  Serious: Yes (Death, Hospitalization)
  Sender: FDA-Public Use
  Company Number: IN-ELI_LILLY_AND_COMPANY-IN201007006731

PATIENT
  Age: 65 Year
  Sex: Female

DRUGS (6)
  1. XIGRIS [Suspect]
     Indication: PNEUMONIA
     Dosage: UNK, 96 HOURS
     Route: 065
     Dates: start: 20100720, end: 20100725
  2. CARBAPENEMS [Concomitant]
     Dosage: UNK, UNKNOWN
     Route: 065
     Dates: start: 20100719
  3. NORADRENALINE [Concomitant]
     Dosage: UNK, UNKNOWN
     Route: 065
  4. VASOPRESSIN [Concomitant]
     Dosage: UNK, UNKNOWN
     Route: 065
  5. DOPAMINE HCL [Concomitant]
     Dosage: UNK, UNKNOWN
     Route: 065
  6. OXYGEN [Concomitant]

REACTIONS (2)
  - GENERAL PHYSICAL HEALTH DETERIORATION [None]
  - RENAL FAILURE [None]
